FAERS Safety Report 14534397 (Version 3)
Quarter: 2018Q1

REPORT INFORMATION
  Report Type: Other
  Country: IT (occurrence: IT)
  Receive Date: 20180215
  Receipt Date: 20180330
  Transmission Date: 20180509
  Serious: Yes (Other)
  Sender: FDA-Public Use
  Company Number: IT-MACLEODS PHARMACEUTICALS US LTD-MAC2018009181

PATIENT

DRUGS (4)
  1. CEFTRIAXONE. [Suspect]
     Active Substance: CEFTRIAXONE
     Indication: PNEUMONIA
     Dosage: UNK
     Route: 042
  2. LINEZOLID. [Concomitant]
     Active Substance: LINEZOLID
     Indication: PRODUCT USED FOR UNKNOWN INDICATION
     Dosage: UNK
     Route: 065
  3. MEROPENEM. [Concomitant]
     Active Substance: MEROPENEM
     Indication: PRODUCT USED FOR UNKNOWN INDICATION
     Dosage: UNK
     Route: 065
  4. LEVOFLOXACIN. [Suspect]
     Active Substance: LEVOFLOXACIN
     Indication: PNEUMONIA
     Dosage: UNK
     Route: 042

REACTIONS (4)
  - Inflammation [Recovered/Resolved]
  - Drug ineffective [Unknown]
  - General physical health deterioration [Recovered/Resolved]
  - Hyperthermia [Recovered/Resolved]
